FAERS Safety Report 17788262 (Version 1)
Quarter: 2020Q2

REPORT INFORMATION
  Report Type: Spontaneous
  Country: CN (occurrence: CN)
  Receive Date: 20200514
  Receipt Date: 20200514
  Transmission Date: 20200714
  Serious: Yes (Other)
  Sender: FDA-Public Use
  Company Number: CN-ROCHE-2597690

PATIENT
  Age: 52 Year
  Sex: Male

DRUGS (17)
  1. AVASTIN [Suspect]
     Active Substance: BEVACIZUMAB
     Indication: LUNG ADENOCARCINOMA
     Route: 065
     Dates: start: 20180319
  2. PEMETREXED. [Concomitant]
     Active Substance: PEMETREXED
     Route: 065
     Dates: start: 20180614
  3. CISPLATIN. [Concomitant]
     Active Substance: CISPLATIN
     Dosage: DAY 1
     Route: 065
     Dates: start: 20180524
  4. AVASTIN [Suspect]
     Active Substance: BEVACIZUMAB
     Dosage: DAY 2
     Route: 065
     Dates: start: 20180502
  5. AVASTIN [Suspect]
     Active Substance: BEVACIZUMAB
     Route: 065
     Dates: start: 20180524
  6. AVASTIN [Suspect]
     Active Substance: BEVACIZUMAB
     Route: 065
     Dates: start: 20180614, end: 20190117
  7. OSIMERTINIB. [Concomitant]
     Active Substance: OSIMERTINIB
     Indication: LUNG ADENOCARCINOMA
     Route: 048
     Dates: start: 20160505
  8. PEMETREXED. [Concomitant]
     Active Substance: PEMETREXED
     Dosage: DAY 2
     Route: 065
     Dates: start: 20180524
  9. PEMETREXED. [Concomitant]
     Active Substance: PEMETREXED
     Indication: LUNG ADENOCARCINOMA
     Dosage: DAY 1
     Route: 065
     Dates: start: 20180319
  10. PEMETREXED. [Concomitant]
     Active Substance: PEMETREXED
     Dosage: DAY 1
     Route: 065
     Dates: start: 20180502
  11. CISPLATIN. [Concomitant]
     Active Substance: CISPLATIN
     Dosage: DAY 1-3
     Route: 065
     Dates: start: 20180410
  12. TARCEVA [Suspect]
     Active Substance: ERLOTINIB HYDROCHLORIDE
     Indication: LUNG ADENOCARCINOMA
     Route: 048
     Dates: start: 20140725
  13. AVASTIN [Suspect]
     Active Substance: BEVACIZUMAB
     Route: 065
     Dates: start: 20180410
  14. OSIMERTINIB. [Concomitant]
     Active Substance: OSIMERTINIB
     Route: 048
     Dates: start: 20190214
  15. PEMETREXED. [Concomitant]
     Active Substance: PEMETREXED
     Dosage: DAY 1
     Route: 065
     Dates: start: 20180410
  16. CISPLATIN. [Concomitant]
     Active Substance: CISPLATIN
     Indication: LUNG ADENOCARCINOMA
     Dosage: DAY 1-3
     Route: 065
     Dates: start: 20180319
  17. CISPLATIN. [Concomitant]
     Active Substance: CISPLATIN
     Dosage: DAY 1
     Route: 065
     Dates: start: 20180502

REACTIONS (3)
  - Bone marrow failure [Recovered/Resolved]
  - Blood pressure increased [Recovered/Resolved]
  - Proteinuria [Unknown]
